FAERS Safety Report 7065834-6 (Version None)
Quarter: 2010Q4

REPORT INFORMATION
  Report Type: 
  Country: None (occurrence: None)
  Receive Date: 20101027
  Receipt Date: 20091121
  Transmission Date: 20110411
  Serious: Yes (Hospitalization)
  Sender: FDA-Public Use
  Company Number: TH-ABBOTT-10P-155-0681366-00

PATIENT
  Age: 3 Year
  Sex: Female
  Weight: 14.5 kg

DRUGS (3)
  1. KLACID GRANULES FOR ORAL SUSPENSION [Suspect]
     Indication: ANTI-INFECTIVE THERAPY
     Route: 048
     Dates: start: 20091113, end: 20091115
  2. CARBOCYSTEINE SYRUP [Concomitant]
     Indication: INCREASED VISCOSITY OF BRONCHIAL SECRETION
     Dates: start: 20091111
  3. CETIRIZINE HCL [Concomitant]
     Indication: ANTIALLERGIC THERAPY
     Dates: start: 20091111

REACTIONS (3)
  - COUGH [None]
  - HYPOPHAGIA [None]
  - PNEUMONIA [None]
